FAERS Safety Report 9145858 (Version 1)
Quarter: 2013Q1

REPORT INFORMATION
  Report Type: Spontaneous
  Country: US (occurrence: US)
  Receive Date: 20130307
  Receipt Date: 20130307
  Transmission Date: 20140127
  Serious: No
  Sender: FDA-Public Use
  Company Number: US-009507513-1303USA002241

PATIENT
  Sex: Male

DRUGS (1)
  1. JANUVIA [Suspect]
     Dosage: 50 MG, UNK
     Route: 048

REACTIONS (4)
  - Cough [Unknown]
  - Influenza like illness [Unknown]
  - Rhinorrhoea [Unknown]
  - Wrong technique in drug usage process [Unknown]
